FAERS Safety Report 18148455 (Version 10)
Quarter: 2023Q2

REPORT INFORMATION
  Report Type: Spontaneous
  Country: CA (occurrence: CA)
  Receive Date: 20200814
  Receipt Date: 20230529
  Transmission Date: 20230721
  Serious: Yes (Other)
  Sender: FDA-Public Use
  Company Number: CA-CELLTRION INC.-2020CA025149

PATIENT

DRUGS (9)
  1. INFLECTRA [Suspect]
     Active Substance: INFLIXIMAB-DYYB
     Indication: Colitis ulcerative
     Dosage: 400 MG AT 0, 2, 6, THEN EVERY 8 WEEKS
     Route: 042
     Dates: start: 20200501, end: 20200806
  2. INFLECTRA [Suspect]
     Active Substance: INFLIXIMAB-DYYB
     Dosage: 400 MG AT 0, 2, 6, THEN EVERY 8 WEEKS
     Route: 042
     Dates: start: 20200611
  3. INFLECTRA [Suspect]
     Active Substance: INFLIXIMAB-DYYB
     Dosage: 400 MG AT 0, 2, 6, THEN EVERY 8 WEEKS
     Route: 042
     Dates: start: 20200806
  4. INFLECTRA [Suspect]
     Active Substance: INFLIXIMAB-DYYB
     Dosage: 700 MG EVERY 8 WEEKS
     Route: 042
     Dates: start: 20201001
  5. INFLECTRA [Suspect]
     Active Substance: INFLIXIMAB-DYYB
     Dosage: 700 MG EVERY 6 WEEKS
     Route: 042
     Dates: start: 20210121
  6. INFLECTRA [Suspect]
     Active Substance: INFLIXIMAB-DYYB
     Dosage: 700 MG EVERY 6 WEEKS
     Route: 042
     Dates: start: 20230508
  7. HYDROCORTISONE [Concomitant]
     Active Substance: HYDROCORTISONE
     Indication: Premedication
     Dosage: 200 MG
     Dates: start: 20200611, end: 20200611
  8. HYDROCORTISONE [Concomitant]
     Active Substance: HYDROCORTISONE
     Dosage: 200 MG
     Dates: start: 20200806, end: 20200806
  9. HYDROCORTISONE [Concomitant]
     Active Substance: HYDROCORTISONE
     Dosage: 200 MG
     Dates: start: 20201001, end: 20201001

REACTIONS (11)
  - Condition aggravated [Recovered/Resolved]
  - Therapeutic response shortened [Unknown]
  - Drug level decreased [Unknown]
  - Drug specific antibody present [Unknown]
  - Drug level below therapeutic [Unknown]
  - Off label use [Unknown]
  - Intentional product use issue [Unknown]
  - Off label use [Unknown]
  - Heart rate decreased [Unknown]
  - Malaise [Unknown]
  - Inappropriate schedule of product administration [Unknown]

NARRATIVE: CASE EVENT DATE: 20200101
